FAERS Safety Report 6284613-0 (Version None)
Quarter: 2009Q3

REPORT INFORMATION
  Report Type: 
  Country: None (occurrence: None)
  Receive Date: 20090723
  Receipt Date: 20090708
  Transmission Date: 20100115
  Serious: Yes (Other)
  Sender: FDA-Public Use
  Company Number: US-000546

PATIENT
  Age: 14 Year
  Sex: Male

DRUGS (1)
  1. DESMOPRESSIN ACETATE [Suspect]
     Indication: DIABETES INSIPIDUS
     Dosage: (1.5 MG, 0.8 MG IN THE MORNING AND 0.7 MG IN THE EVENING)

REACTIONS (3)
  - BLOOD SODIUM INCREASED [None]
  - DRUG TOLERANCE [None]
  - THERAPEUTIC RESPONSE DECREASED [None]
